FAERS Safety Report 8564057-9 (Version None)
Quarter: 2012Q3

REPORT INFORMATION
  Report Type: 
  Country: None (occurrence: None)
  Receive Date: 20120803
  Receipt Date: 20120720
  Transmission Date: 20120928
  Serious: Yes (Death, Hospitalization)
  Sender: FDA-Public Use
  Company Number: US-RANBAXY-2012US-58505

PATIENT
  Age: 58 Year
  Sex: Male

DRUGS (3)
  1. LEVOFLOXACIN [Suspect]
     Indication: OTITIS MEDIA
     Dosage: 750 MG, DAILY
     Route: 065
  2. LEVOFLOXACIN [Suspect]
     Indication: CELLULITIS
  3. SIMVASTATIN [Suspect]
     Indication: PRODUCT USED FOR UNKNOWN INDICATION
     Dosage: 20 MG,DAILY
     Route: 065

REACTIONS (2)
  - CONDITION AGGRAVATED [None]
  - TENDON INJURY [None]
